FAERS Safety Report 8194357-6 (Version None)
Quarter: 2012Q1

REPORT INFORMATION
  Report Type: 
  Country: None (occurrence: None)
  Receive Date: 20120308
  Receipt Date: 20120227
  Transmission Date: 20120608
  Serious: Yes (Other)
  Sender: FDA-Public Use
  Company Number: US-JNJFOC-20120213411

PATIENT
  Sex: Female
  Weight: 58 kg

DRUGS (11)
  1. LYRICA [Suspect]
     Indication: NEURALGIA
     Route: 048
     Dates: start: 20100601, end: 20100601
  2. METHYLPREDNISOLONE [Concomitant]
     Indication: MYALGIA
     Route: 065
  3. TRAMADOL HCL [Suspect]
     Indication: HEADACHE
     Route: 065
  4. IBUPROFEN [Suspect]
     Indication: HEADACHE
     Route: 065
  5. ACETAMINOPHEN [Suspect]
     Route: 065
  6. LYRICA [Suspect]
     Indication: FIBROMYALGIA
     Route: 048
     Dates: start: 20100601, end: 20100601
  7. VALIUM [Suspect]
     Indication: HEADACHE
     Route: 065
  8. LYRICA [Suspect]
     Indication: MYALGIA
     Route: 048
     Dates: start: 20100601, end: 20100601
  9. ALL OTHER THERAPEUTIC PRODUCTS [Suspect]
     Indication: HEADACHE
     Route: 065
  10. VITAMIN D [Concomitant]
     Indication: PRODUCT USED FOR UNKNOWN INDICATION
     Route: 065
  11. ACETAMINOPHEN [Suspect]
     Indication: HEADACHE
     Route: 065

REACTIONS (1)
  - DRUG INEFFECTIVE [None]
